FAERS Safety Report 4492035-8 (Version None)
Quarter: 2004Q4

REPORT INFORMATION
  Report Type: 
  Country: None (occurrence: None)
  Receive Date: 20041029
  Receipt Date: 20041013
  Transmission Date: 20050328
  Serious: Yes (Other)
  Sender: FDA-Public Use
  Company Number: 2004-DE-05256GD

PATIENT
  Age: 68 Year
  Sex: Female

DRUGS (3)
  1. PRAMIPEXOLE (PRAMIPEXOLE DIHYDROCHLORIDE) (NR) (PRAMIPEXOLE) [Suspect]
     Indication: PARKINSON'S DISEASE
     Dosage: 2.1 MG
  2. ROPINIROLE (ROPINIROLE) [Suspect]
     Indication: PARKINSON'S DISEASE
  3. L-DOPA (LEVODOPA) [Suspect]
     Indication: PARKINSON'S DISEASE

REACTIONS (5)
  - AKINESIA [None]
  - DRUG INEFFECTIVE [None]
  - DRUG WITHDRAWAL SYNDROME [None]
  - MALABSORPTION [None]
  - NEUROLEPTIC MALIGNANT SYNDROME [None]
